FAERS Safety Report 17796117 (Version 2)
Quarter: 2021Q1

REPORT INFORMATION
  Report Type: Other
  Country: US (occurrence: US)
  Receive Date: 20200517
  Receipt Date: 20210106
  Transmission Date: 20210419
  Serious: No
  Sender: FDA-Public Use
  Company Number: US-ROCHE-2591645

PATIENT
  Age: 50 Year
  Sex: Female
  Weight: 79.9 kg

DRUGS (11)
  1. ACETAMINOPHEN;CODEINE [Concomitant]
     Active Substance: ACETAMINOPHEN\CODEINE PHOSPHATE
     Indication: HEADACHE
     Dosage: TAKE 1 TAB BY MOUTH EVERY 6 HRS AS NEEDED FOR SEVERE HEADACHE
     Route: 048
  2. OCREVUS [Suspect]
     Active Substance: OCRELIZUMAB
     Dosage: ONGOING: NO
     Route: 065
  3. GILENYA [Concomitant]
     Active Substance: FINGOLIMOD HYDROCHLORIDE
     Route: 048
  4. BACLOFEN. [Concomitant]
     Active Substance: BACLOFEN
     Dosage: 1/2 PO EVERY 8 HR PRN FOR SPAM
  5. DENAVIR [Concomitant]
     Active Substance: PENCICLOVIR
     Dosage: APPLY CREAM TOPICALLY TO AFFECTED AREA EVERY 2 HRS DURING WALKING HRS FOR 4 DAYS
     Route: 061
  6. HYDROCORTISONE. [Concomitant]
     Active Substance: HYDROCORTISONE
     Dosage: APPLY A THIN LAYER TO THE AFFECTED AREA BY TOPICAL ROUTE 2 TIMES PER DAY
     Route: 061
  7. CHOLECALCIFEROL [Concomitant]
     Active Substance: CHOLECALCIFEROL
     Route: 048
     Dates: start: 20160330
  8. OXYBUTYNIN. [Concomitant]
     Active Substance: OXYBUTYNIN CHLORIDE
     Route: 048
  9. AMITRIPTYLINE [Concomitant]
     Active Substance: AMITRIPTYLINE
     Route: 048
  10. IBUPROFEN. [Concomitant]
     Active Substance: IBUPROFEN
     Dosage: 1 TABLET BY MOUTH EVERY 6 TO 8 HOURS
  11. OCREVUS [Suspect]
     Active Substance: OCRELIZUMAB
     Indication: RELAPSING MULTIPLE SCLEROSIS
     Dosage: ONGOING: NO DAY 1 AND REPEAT DOSE ON DAY 15
     Route: 065

REACTIONS (4)
  - Haemorrhoids [Unknown]
  - Headache [Unknown]
  - Oral herpes [Unknown]
  - Migraine [Unknown]

NARRATIVE: CASE EVENT DATE: 20200102
